FAERS Safety Report 6937541-9 (Version None)
Quarter: 2010Q3

REPORT INFORMATION
  Report Type: 
  Country: None (occurrence: None)
  Receive Date: 20100823
  Receipt Date: 20100823
  Transmission Date: 20110219
  Serious: Yes (Hospitalization)
  Sender: FDA-Public Use
  Company Number: None

PATIENT
  Age: 23 Month
  Sex: Male
  Weight: 13.3358 kg

DRUGS (2)
  1. PREDNISOLONE [Suspect]
     Indication: NEPHROTIC SYNDROME
     Dosage: 5 ML TWICE DAILY PO
     Route: 048
     Dates: start: 20100702, end: 20100728
  2. PREDNISOLONE [Suspect]
     Dosage: 5 ML TWICE DAILY PO
     Route: 048
     Dates: start: 20100729, end: 20100813

REACTIONS (4)
  - BLOOD ALBUMIN DECREASED [None]
  - DRUG INEFFECTIVE [None]
  - PRODUCT COLOUR ISSUE [None]
  - PRODUCT QUALITY ISSUE [None]
